FAERS Safety Report 16095970 (Version 1)
Quarter: 2019Q1

REPORT INFORMATION
  Report Type: Spontaneous
  Country: US (occurrence: US)
  Receive Date: 20190320
  Receipt Date: 20190320
  Transmission Date: 20190418
  Serious: No
  Sender: FDA-Public Use
  Company Number: US-HARRIS PHARMACEUTICAL-2018HAR00031

PATIENT
  Age: 43 Year
  Sex: Female
  Weight: 90.7 kg

DRUGS (2)
  1. FLUCONAZOLE. [Suspect]
     Active Substance: FLUCONAZOLE
     Indication: ORAL CANDIDIASIS
     Dosage: 200 MG, 1X/DAY
     Route: 048
     Dates: start: 20180718, end: 20180726
  2. ORAL HYDROGEN PEROXIDE RINSE [Suspect]
     Active Substance: HYDROGEN PEROXIDE
     Indication: ORAL CANDIDIASIS
     Dosage: UNK, 3 TO 4 TIMES DAILY WITH DISTILLED WATER
     Route: 048
     Dates: start: 20180718

REACTIONS (1)
  - Drug ineffective [Recovered/Resolved]

NARRATIVE: CASE EVENT DATE: 20180718
